FAERS Safety Report 6489697-2 (Version None)
Quarter: 2009Q4

REPORT INFORMATION
  Report Type: 
  Country: None (occurrence: None)
  Receive Date: 20091207
  Receipt Date: 20091119
  Transmission Date: 20100525
  Serious: Yes (Hospitalization)
  Sender: FDA-Public Use
  Company Number: BVT-000373

PATIENT
  Age: 62 Year
  Sex: Female

DRUGS (1)
  1. KINERET [Suspect]
     Indication: CASTLEMAN'S DISEASE
     Dosage: 100 MG SUBCUTANEOUS
     Route: 058
     Dates: start: 20090601, end: 20091111

REACTIONS (1)
  - DIARRHOEA [None]
